FAERS Safety Report 23286799 (Version 1)
Quarter: 2023Q4

REPORT INFORMATION
  Report Type: Spontaneous
  Country: US (occurrence: US)
  Receive Date: 20231212
  Receipt Date: 20231212
  Transmission Date: 20240109
  Serious: Yes (Hospitalization, Other)
  Sender: FDA-Public Use
  Company Number: US-SA-2023SA383502

PATIENT
  Age: 44 Year
  Sex: Female

DRUGS (1)
  1. DUPIXENT [Suspect]
     Active Substance: DUPILUMAB
     Indication: Asthma
     Dosage: 300 MG, QOW
     Route: 058
     Dates: start: 202301

REACTIONS (4)
  - Pericardial effusion [Unknown]
  - Immunodeficiency common variable [Unknown]
  - Hepatomegaly [Unknown]
  - B-lymphocyte abnormalities [Unknown]

NARRATIVE: CASE EVENT DATE: 20230101
